FAERS Safety Report 9798657 (Version 1)
Quarter: 2014Q1

REPORT INFORMATION
  Report Type: Spontaneous
  Country: US (occurrence: US)
  Receive Date: 20140106
  Receipt Date: 20140106
  Transmission Date: 20141002
  Serious: No
  Sender: FDA-Public Use
  Company Number: US-GILEAD-2010-0029680

PATIENT
  Sex: Female
  Weight: 18.14 kg

DRUGS (5)
  1. LETAIRIS [Suspect]
     Indication: PULMONARY ARTERIAL HYPERTENSION
     Route: 048
     Dates: start: 20100514
  2. NIFEDIPINE ER [Concomitant]
  3. CIALIS [Concomitant]
  4. BABY ASPIRIN [Concomitant]
  5. ADCIRCA [Concomitant]

REACTIONS (1)
  - Headache [Unknown]
